FAERS Safety Report 6456663-2 (Version None)
Quarter: 2009Q4

REPORT INFORMATION
  Report Type: 
  Country: None (occurrence: None)
  Receive Date: 20091125
  Receipt Date: 20090218
  Transmission Date: 20100525
  Serious: No
  Sender: FDA-Public Use
  Company Number: A0753879A

PATIENT
  Age: 36 Year
  Sex: Female

DRUGS (8)
  1. LANOXIN [Suspect]
     Indication: CARDIAC FAILURE
     Route: 048
     Dates: start: 19960101
  2. LANOXICAPS [Suspect]
     Indication: CARDIAC FAILURE
     Dosage: .1MCG UNKNOWN
     Route: 048
     Dates: start: 19960101, end: 20081025
  3. DIGOXIN [Suspect]
     Indication: DRUG USE FOR UNKNOWN INDICATION
     Route: 048
     Dates: start: 20081025
  4. ZESTRIL [Suspect]
     Indication: DRUG USE FOR UNKNOWN INDICATION
     Dosage: 10MG PER DAY
     Route: 065
     Dates: start: 19950101
  5. COREG [Concomitant]
  6. FUROSEMIDE [Concomitant]
  7. LEVOXYL [Concomitant]
  8. KLONOPIN [Concomitant]

REACTIONS (9)
  - DEPRESSION [None]
  - DIARRHOEA [None]
  - DRUG INEFFECTIVE [None]
  - DRUG INTERACTION [None]
  - IMMOBILE [None]
  - MENTAL IMPAIRMENT [None]
  - MOOD ALTERED [None]
  - NAUSEA [None]
  - SWELLING FACE [None]
